FAERS Safety Report 6651751-X (Version None)
Quarter: 2010Q1

REPORT INFORMATION
  Report Type: 
  Country: None (occurrence: None)
  Receive Date: 20100309
  Receipt Date: 20091215
  Transmission Date: 20100710
  Serious: No
  Sender: FDA-Public Use
  Company Number: 2009SP035184

PATIENT

DRUGS (2)
  1. SAPHRIS [Suspect]
     Indication: DRUG USE FOR UNKNOWN INDICATION
     Dosage: 10 MG; BID; SL
     Route: 060
     Dates: start: 20091020, end: 20091021
  2. BUSPAR [Concomitant]

REACTIONS (2)
  - HYPOAESTHESIA ORAL [None]
  - SWOLLEN TONGUE [None]
